FAERS Safety Report 6113067-X (Version None)
Quarter: 2009Q1

REPORT INFORMATION
  Report Type: 
  Country: None (occurrence: None)
  Receive Date: 20090312
  Receipt Date: 20090309
  Transmission Date: 20090719
  Serious: Yes (Life-Threatening)
  Sender: FDA-Public Use
  Company Number: JP-ASTRAZENECA-2009AP01796

PATIENT
  Age: 70 Year
  Sex: Male

DRUGS (2)
  1. DIPRIVAN [Suspect]
     Indication: GENERAL ANAESTHESIA
     Dosage: DOSE UNKNOWN
     Route: 042
  2. ULTIVA [Suspect]
     Dosage: DOSE UNKNOWN
     Route: 042

REACTIONS (4)
  - ARTERIOSPASM CORONARY [None]
  - CARDIAC ARREST [None]
  - CORONARY ARTERY STENOSIS [None]
  - VENTRICULAR TACHYCARDIA [None]
